FAERS Safety Report 4824910-6 (Version None)
Quarter: 2005Q4

REPORT INFORMATION
  Report Type: 
  Country: None (occurrence: None)
  Receive Date: 20051014
  Receipt Date: 20050628
  Transmission Date: 20060501
  Serious: No
  Sender: FDA-Public Use
  Company Number: 2005SP001651

PATIENT
  Age: 74 Year
  Sex: Female

DRUGS (15)
  1. LUNESTA [Suspect]
     Indication: INSOMNIA
     Dosage: 1 + 2 MG; 1X; ORAL
     Route: 048
     Dates: start: 20050625, end: 20050625
  2. LUNESTA [Suspect]
     Indication: INSOMNIA
     Dosage: 1 + 2 MG; 1X; ORAL
     Route: 048
     Dates: start: 20050626, end: 20050626
  3. ATACAND [Concomitant]
  4. FOLIC ACID [Concomitant]
  5. ATORVASTATIN CALCIUM [Concomitant]
  6. NEXIUM [Concomitant]
  7. XANAX [Concomitant]
  8. SYNTHROID [Concomitant]
  9. HUMIRA [Concomitant]
  10. PROZAC [Concomitant]
  11. KETOPROFEN [Concomitant]
  12. MULTIVITAMIN [Concomitant]
  13. METHOTREXATE [Concomitant]
  14. AMBIEN [Concomitant]
  15. DARVOCET-N 100 [Concomitant]

REACTIONS (2)
  - DRUG INEFFECTIVE [None]
  - INSOMNIA [None]
